FAERS Safety Report 18748984 (Version 2)
Quarter: 2021Q1

REPORT INFORMATION
  Report Type: Spontaneous
  Country: US (occurrence: US)
  Receive Date: 20210115
  Receipt Date: 20210126
  Transmission Date: 20210419
  Serious: Yes (Other)
  Sender: FDA-Public Use
  Company Number: US-AUROBINDO-AUR-APL-2021-001425

PATIENT
  Age: 48 Year
  Sex: Female

DRUGS (3)
  1. TENOFOVIR DISOPROXIL FUMARATE. [Suspect]
     Active Substance: TENOFOVIR DISOPROXIL FUMARATE
     Indication: HIV INFECTION
     Dosage: UNK
     Route: 065
  2. TENOFOVIR DISOPROXIL FUMARATE. [Suspect]
     Active Substance: TENOFOVIR DISOPROXIL FUMARATE
     Indication: ACQUIRED IMMUNODEFICIENCY SYNDROME
  3. ESTRADIOL. [Concomitant]
     Active Substance: ESTRADIOL
     Indication: GENDER DYSPHORIA
     Dosage: UNK
     Route: 065

REACTIONS (5)
  - Renal tubular dysfunction [Recovering/Resolving]
  - Nephropathy toxic [Recovering/Resolving]
  - Chronic kidney disease [Recovering/Resolving]
  - Osteoporosis [Unknown]
  - Osteopenia [Unknown]
